FAERS Safety Report 10530339 (Version 1)
Quarter: 2014Q4

REPORT INFORMATION
  Report Type: Spontaneous
  Country: US (occurrence: None)
  Receive Date: 20141020
  Receipt Date: 20141020
  Transmission Date: 20150528
  Serious: Yes (Disabling, Other)
  Sender: FDA-Public Use
  Company Number: None

PATIENT
  Age: 61 Year
  Sex: Female
  Weight: 104.33 kg

DRUGS (2)
  1. BYSTOLIC [Suspect]
     Active Substance: NEBIVOLOL HYDROCHLORIDE
     Indication: BLOOD PRESSURE ABNORMAL
     Dosage: 1 TAB PER DAY ONCE DAILY TAKEN BY MOUTH
     Route: 048
     Dates: start: 20121210, end: 20141001
  2. BYSTOLIC [Suspect]
     Active Substance: NEBIVOLOL HYDROCHLORIDE
     Indication: CARDIOVASCULAR DISORDER
     Dosage: 1 TAB PER DAY ONCE DAILY TAKEN BY MOUTH
     Route: 048
     Dates: start: 20121210, end: 20141001

REACTIONS (8)
  - Dizziness [None]
  - Depression [None]
  - Loss of employment [None]
  - Quality of life decreased [None]
  - Drug interaction [None]
  - Unevaluable event [None]
  - Fatigue [None]
  - Anxiety [None]
